FAERS Safety Report 7921340-5 (Version None)
Quarter: 2011Q4

REPORT INFORMATION
  Report Type: 
  Country: None (occurrence: None)
  Receive Date: 20111117
  Receipt Date: 20111111
  Transmission Date: 20120403
  Serious: Yes (Hospitalization)
  Sender: FDA-Public Use
  Company Number: US-JNJFOC-20110801633

PATIENT
  Sex: Female
  Weight: 83.1 kg

DRUGS (8)
  1. USTEKINUMAB [Suspect]
     Indication: PSORIASIS
     Route: 058
     Dates: start: 20100201
  2. DILTIAZEM HCL [Concomitant]
     Route: 048
  3. TESSALON [Concomitant]
     Indication: COUGH
     Route: 048
  4. FLONASE [Concomitant]
     Route: 055
  5. ASPIRIN [Concomitant]
     Route: 048
  6. LISINOPRIL [Concomitant]
     Route: 048
  7. SPIRONOLACTONE [Concomitant]
     Route: 048
  8. LASIX [Concomitant]
     Route: 048

REACTIONS (4)
  - RENAL FAILURE ACUTE [None]
  - DIZZINESS [None]
  - ASTHENIA [None]
  - URINARY TRACT INFECTION [None]
